FAERS Safety Report 15707657 (Version 4)
Quarter: 2019Q2

REPORT INFORMATION
  Report Type: Report from Study
  Country: None (occurrence: US)
  Receive Date: 20181211
  Receipt Date: 20190613
  Transmission Date: 20190711
  Serious: Yes (Hospitalization, Other)
  Sender: FDA-Public Use
  Company Number: US-ABBVIE-18K-163-2581889-00

PATIENT
  Age: 57 Year
  Sex: Female
  Weight: 83.99 kg

DRUGS (1)
  1. HUMIRA [Suspect]
     Active Substance: ADALIMUMAB
     Indication: CROHN^S DISEASE
     Route: 058
     Dates: end: 20181206

REACTIONS (6)
  - Post procedural fistula [Unknown]
  - Surgery [Unknown]
  - Hernia [Unknown]
  - Surgery [Unknown]
  - Intestinal resection [Unknown]
  - Cough [Unknown]

NARRATIVE: CASE EVENT DATE: 20181128
